FAERS Safety Report 6486895-9 (Version None)
Quarter: 2009Q4

REPORT INFORMATION
  Report Type: 
  Country: None (occurrence: None)
  Receive Date: 20091209
  Receipt Date: 20091209
  Transmission Date: 20100525
  Serious: Yes (Hospitalization)
  Sender: FDA-Public Use
  Company Number: None

PATIENT
  Age: 68 Year
  Sex: Male
  Weight: 95.5 kg

DRUGS (10)
  1. ZACTIMA PROTOCOL TREATMENT [Suspect]
     Indication: BLADDER CANCER
     Dosage: 100 MG PO QD
     Route: 048
     Dates: start: 20080925, end: 20081024
  2. DOCETAXEL [Suspect]
     Indication: BLADDER CANCER
     Dosage: 75MG/M2 IV Q 28D
     Route: 042
     Dates: start: 20080925, end: 20081024
  3. NIFEDIPINE [Concomitant]
  4. ZYRTEC [Concomitant]
  5. ALDACTONE [Concomitant]
  6. QUINAPRIL [Concomitant]
  7. LOVENOX [Concomitant]
  8. OXYCODONE [Concomitant]
  9. MOM [Concomitant]
  10. COMLEVENT [Concomitant]

REACTIONS (3)
  - DYSPNOEA [None]
  - EMBOLISM [None]
  - PYREXIA [None]
